FAERS Safety Report 6786314-9 (Version None)
Quarter: 2010Q2

REPORT INFORMATION
  Report Type: 
  Country: None (occurrence: None)
  Receive Date: 20100623
  Receipt Date: 20100622
  Transmission Date: 20101027
  Serious: Yes (Hospitalization, Other)
  Sender: FDA-Public Use
  Company Number: GXKR2010DE06439

PATIENT
  Sex: Male
  Weight: 90 kg

DRUGS (3)
  1. EPIRUBICIN (NGX) [Suspect]
     Indication: OESOPHAGEAL CARCINOMA
     Dosage: 50 MG/M2, EVERY 3 WEEKS
     Route: 065
     Dates: start: 20100201, end: 20100301
  2. FLUOROURACIL [Concomitant]
     Dosage: 2600 MG/M2, EVERY 3 WEEKS
     Route: 042
     Dates: start: 20100201, end: 20100301
  3. OXALIPLATIN [Concomitant]
     Dosage: 130 MG/M2, UNK
     Route: 042
     Dates: start: 20100201, end: 20100301

REACTIONS (7)
  - ARRHYTHMIA [None]
  - CEREBROVASCULAR ACCIDENT [None]
  - COORDINATION ABNORMAL [None]
  - HEPATIC FAILURE [None]
  - HEPATITIS [None]
  - METASTASES TO LIVER [None]
  - OPHTHALMOPLEGIA [None]
